FAERS Safety Report 13502751 (Version 6)
Quarter: 2018Q4

REPORT INFORMATION
  Report Type: Spontaneous
  Country: JP (occurrence: JP)
  Receive Date: 20170502
  Receipt Date: 20181211
  Transmission Date: 20190204
  Serious: Yes (Other)
  Sender: FDA-Public Use
  Company Number: JP-009507513-1703JPN003197J

PATIENT
  Age: 74 Year
  Sex: Male
  Weight: 61 kg

DRUGS (9)
  1. LOXONIN [Concomitant]
     Active Substance: LOXOPROFEN SODIUM
     Indication: TOOTHACHE
     Dosage: UNK
     Route: 048
  2. WARFARIN [Concomitant]
     Active Substance: WARFARIN
     Dosage: 3.5 MILLIGRAM, QD
     Route: 048
  3. DIOVAN [Concomitant]
     Active Substance: VALSARTAN
     Dosage: 80.0 MILLIGRAM, QD
     Route: 048
  4. KEYTRUDA [Suspect]
     Active Substance: PEMBROLIZUMAB
     Indication: LUNG ADENOCARCINOMA
     Dosage: 200 MILLIGRAM, Q3W
     Route: 041
     Dates: start: 20170329, end: 20170628
  5. TRAZENTA [Concomitant]
     Active Substance: LINAGLIPTIN
     Dosage: 5.0 MILLIGRAM, QD
     Route: 048
  6. SEIBULE [Concomitant]
     Active Substance: MIGLITOL
     Dosage: 75.0 MILLIGRAM, TID
     Route: 048
  7. SUREPOST [Concomitant]
     Active Substance: REPAGLINIDE
     Dosage: 0.5 MILLIGRAM, BID
     Route: 048
  8. METGLUCO [Concomitant]
     Active Substance: METFORMIN HYDROCHLORIDE
     Dosage: 500.0 MILLIGRAM, TID
     Route: 048
  9. CRESTOR [Concomitant]
     Active Substance: ROSUVASTATIN CALCIUM
     Dosage: 2.5 MILLIGRAM, QD
     Route: 048

REACTIONS (4)
  - Toothache [Recovered/Resolved]
  - Haematuria [Recovered/Resolved]
  - Pyrexia [Recovered/Resolved]
  - Dental necrosis [Unknown]

NARRATIVE: CASE EVENT DATE: 201704
